FAERS Safety Report 8085506-9 (Version None)
Quarter: 2012Q1

REPORT INFORMATION
  Report Type: 
  Country: None (occurrence: None)
  Receive Date: 20120128
  Receipt Date: 20110525
  Transmission Date: 20120608
  Serious: No
  Sender: FDA-Public Use
  Company Number: US-ABBOTT-11P-163-0709550-00

PATIENT
  Sex: Female
  Weight: 63.56 kg

DRUGS (8)
  1. HUMIRA [Suspect]
     Indication: ANKYLOSING SPONDYLITIS
     Dates: start: 20101101
  2. PREMARIN [Concomitant]
     Indication: HORMONE REPLACEMENT THERAPY
  3. FIORICET [Concomitant]
     Indication: PAIN
  4. LAMICTAL [Concomitant]
     Indication: EPILEPSY
  5. SYNTHROID [Concomitant]
     Indication: BLOOD THYROID STIMULATING HORMONE DECREASED
  6. FIORICET [Concomitant]
  7. SOMA [Concomitant]
     Indication: ANKYLOSING SPONDYLITIS
  8. SOMA [Concomitant]

REACTIONS (2)
  - EXFOLIATIVE RASH [None]
  - RASH ERYTHEMATOUS [None]
